FAERS Safety Report 8189050-X (Version None)
Quarter: 2012Q1

REPORT INFORMATION
  Report Type: 
  Country: None (occurrence: None)
  Receive Date: 20120307
  Receipt Date: 20120301
  Transmission Date: 20120608
  Serious: No
  Sender: FDA-Public Use
  Company Number: US-BIOGENIDEC-2012BI007676

PATIENT
  Age: 54 Year
  Sex: Female

DRUGS (2)
  1. TYSABRI [Suspect]
     Indication: MULTIPLE SCLEROSIS
     Route: 042
     Dates: start: 20071018, end: 20111208
  2. AVONEX [Concomitant]
     Indication: MULTIPLE SCLEROSIS
     Route: 030

REACTIONS (2)
  - URINARY TRACT INFECTION [None]
  - COORDINATION ABNORMAL [None]
